FAERS Safety Report 6292064-8 (Version None)
Quarter: 2009Q3

REPORT INFORMATION
  Report Type: 
  Country: None (occurrence: None)
  Receive Date: 20090731
  Receipt Date: 20090722
  Transmission Date: 20100115
  Serious: Yes (Hospitalization, Other)
  Sender: FDA-Public Use
  Company Number: BR-BIOGENIDEC-2008BI023066

PATIENT
  Age: 37 Year
  Sex: Female

DRUGS (4)
  1. AVONEX [Suspect]
     Indication: MULTIPLE SCLEROSIS
     Route: 030
     Dates: start: 20080715, end: 20081201
  2. VENLAFAXINE HYDROCHLORIDE [Concomitant]
     Indication: DEPRESSION
  3. PANTOPRAZOLE SODIUM [Concomitant]
     Indication: GASTRIC DISORDER
  4. UNSPECIFIED DRUG [Concomitant]
     Indication: PAIN

REACTIONS (7)
  - BILIARY TRACT DISORDER [None]
  - EYE PAIN [None]
  - GENERAL SYMPTOM [None]
  - HEPATITIS [None]
  - HYPERHIDROSIS [None]
  - INFLUENZA LIKE ILLNESS [None]
  - PANCREATITIS ACUTE [None]
